FAERS Safety Report 8923265 (Version 3)
Quarter: 2013Q1

REPORT INFORMATION
  Report Type: Report from Study
  Country: CA (occurrence: CA)
  Receive Date: 20121123
  Receipt Date: 20130121
  Transmission Date: 20140127
  Serious: Yes (Other)
  Sender: FDA-Public Use
  Company Number: CA-JNJFOC-20121109001

PATIENT
  Age: 42 None
  Sex: Male
  Weight: 80.74 kg

DRUGS (4)
  1. REMICADE [Suspect]
     Indication: CROHN^S DISEASE
     Route: 042
     Dates: start: 20111206
  2. REMICADE [Suspect]
     Indication: CROHN^S DISEASE
     Route: 042
     Dates: start: 201202, end: 20120815
  3. PREDNISONE [Concomitant]
     Route: 048
  4. PANTOLOC [Concomitant]
     Route: 048

REACTIONS (5)
  - Surgery [Unknown]
  - Biopsy lymph gland [Unknown]
  - Tuberculosis [Unknown]
  - Inflammation [Unknown]
  - Movement disorder [Unknown]
